FAERS Safety Report 8543397-3 (Version None)
Quarter: 2012Q3

REPORT INFORMATION
  Report Type: 
  Country: None (occurrence: None)
  Receive Date: 20120727
  Receipt Date: 20120716
  Transmission Date: 20120928
  Serious: Yes (Hospitalization, Other)
  Sender: FDA-Public Use
  Company Number: US-BAYER-2011-120022

PATIENT
  Age: 18 Year
  Sex: Female
  Weight: 66 kg

DRUGS (5)
  1. YAZ [Suspect]
     Indication: CONTRACEPTION
  2. PREVACID [Concomitant]
     Indication: GASTROOESOPHAGEAL REFLUX DISEASE
     Dosage: UNK
     Dates: start: 20080101, end: 20090101
  3. YAZ [Suspect]
     Indication: ACNE
     Dosage: UNK
     Dates: start: 20080301, end: 20090901
  4. ZYRTEC [Concomitant]
     Indication: MULTIPLE ALLERGIES
     Dosage: UNK
     Dates: start: 20080101
  5. NAPROXEN [Concomitant]
     Indication: HEADACHE
     Dosage: UNK
     Dates: start: 20080101

REACTIONS (11)
  - EMOTIONAL DISTRESS [None]
  - FIBRIN D DIMER INCREASED [None]
  - BILE DUCT STONE [None]
  - INJURY [None]
  - CHOLELITHIASIS [None]
  - PANCREATITIS [None]
  - ANXIETY [None]
  - BILIARY DYSKINESIA [None]
  - CHOLECYSTITIS CHRONIC [None]
  - PAIN [None]
  - OVARIAN CYST [None]
